FAERS Safety Report 19841250 (Version 1)
Quarter: 2021Q3

REPORT INFORMATION
  Report Type: Other
  Country: US (occurrence: US)
  Receive Date: 20210916
  Receipt Date: 20210916
  Transmission Date: 20211014
  Serious: Yes (Hospitalization)
  Sender: FDA-Public Use
  Company Number: US-ROCHE-2909332

PATIENT
  Age: 2 Year
  Sex: Male
  Weight: 8.6 kg

DRUGS (2)
  1. NUTROPIN [Suspect]
     Active Substance: SOMATROPIN
  2. NUTROPIN [Suspect]
     Active Substance: SOMATROPIN
     Indication: SHORT STATURE HOMEOBOX GENE MUTATION
     Route: 058

REACTIONS (4)
  - Respiratory distress [Recovered/Resolved]
  - Viral infection [Recovered/Resolved]
  - Gastrooesophageal reflux disease [Unknown]
  - Ear tube insertion [Unknown]

NARRATIVE: CASE EVENT DATE: 202102
